FAERS Safety Report 23863170 (Version 2)
Quarter: 2024Q2

REPORT INFORMATION
  Report Type: Spontaneous
  Country: DE (occurrence: DE)
  Receive Date: 20240516
  Receipt Date: 20240523
  Transmission Date: 20240716
  Serious: Yes (Other)
  Sender: FDA-Public Use
  Company Number: DE-TORRENT-00026660

PATIENT
  Age: 49 Year
  Sex: Female
  Weight: 61 kg

DRUGS (10)
  1. DESLORATADINE [Interacting]
     Active Substance: DESLORATADINE
     Indication: Product used for unknown indication
     Dosage: UNKNOWN
  2. TRANEXAMIC ACID [Interacting]
     Active Substance: TRANEXAMIC ACID
     Indication: Product used for unknown indication
     Dosage: UNKNOWN
  3. CLARITHROMYCIN [Interacting]
     Active Substance: CLARITHROMYCIN
     Indication: Product used for unknown indication
     Dosage: UNKNOWN
  4. PANTOPRAZOLE [Interacting]
     Active Substance: PANTOPRAZOLE
     Indication: Product used for unknown indication
     Dosage: UNKNOWN
  5. OMEPRAZOLE [Interacting]
     Active Substance: DONEPEZIL HYDROCHLORIDE\OMEPRAZOLE\OMEPRAZOLE MAGNESIUM
     Indication: Product used for unknown indication
     Dosage: UNKNOWN
  6. DDAVP [Interacting]
     Active Substance: DESMOPRESSIN ACETATE
     Indication: Product used for unknown indication
     Dosage: UNKNOWN
  7. ERYTHROMYCIN [Interacting]
     Active Substance: ERYTHROMYCIN
     Indication: Product used for unknown indication
     Dosage: UNKNOWN
  8. DESLORATADINE [Interacting]
     Active Substance: DESLORATADINE
     Indication: Urticaria
     Dosage: UNK
  9. DESLORATADINE [Interacting]
     Active Substance: DESLORATADINE
     Indication: Seasonal allergy
  10. CETIRIZINE [Concomitant]
     Active Substance: CETIRIZINE HYDROCHLORIDE
     Indication: Product used for unknown indication
     Dosage: DROPS IF REQUIRED AND IN CASE OF EMERGENCY

REACTIONS (17)
  - Syncope [Unknown]
  - Drug interaction [Unknown]
  - Muscle spasms [Unknown]
  - Rash [Unknown]
  - Nausea [Unknown]
  - Swollen tongue [Unknown]
  - Dizziness [Unknown]
  - Dyspnoea [Unknown]
  - Myalgia [Unknown]
  - Cardiovascular disorder [Unknown]
  - Mouth swelling [Unknown]
  - Abdominal discomfort [Unknown]
  - Hypersensitivity [Unknown]
  - Visual impairment [Unknown]
  - Arthralgia [Unknown]
  - Migraine [Unknown]
  - Diarrhoea [Unknown]
